FAERS Safety Report 7429357-4 (Version None)
Quarter: 2011Q2

REPORT INFORMATION
  Report Type: 
  Country: None (occurrence: None)
  Receive Date: 20110421
  Receipt Date: 20110411
  Transmission Date: 20111010
  Serious: Yes (Other)
  Sender: FDA-Public Use
  Company Number: DE-ALEXION-A201100530

PATIENT
  Sex: Female

DRUGS (2)
  1. SOLIRIS [Suspect]
     Dosage: UNK
     Route: 042
     Dates: start: 20080101
  2. SOLIRIS [Suspect]
     Indication: PAROXYSMAL NOCTURNAL HAEMOGLOBINURIA
     Dosage: UNK
     Route: 042
     Dates: start: 20071201, end: 20080101

REACTIONS (4)
  - HERPES VIRUS INFECTION [None]
  - PNEUMONIA HERPES VIRAL [None]
  - IMPETIGO [None]
  - ABDOMINAL PAIN [None]
